FAERS Safety Report 20459997 (Version 3)
Quarter: 2022Q3

REPORT INFORMATION
  Report Type: Report from Study
  Country: IL (occurrence: IL)
  Receive Date: 20220211
  Receipt Date: 20220715
  Transmission Date: 20221027
  Serious: Yes (Death, Hospitalization, Other)
  Sender: FDA-Public Use
  Company Number: IL-BAXTER-2021BAX036347

PATIENT
  Age: 9 Year
  Sex: Female
  Weight: 36 kg

DRUGS (2)
  1. IFOSFAMIDE [Suspect]
     Active Substance: IFOSFAMIDE
     Indication: Osteosarcoma
     Dosage: 3000 MG/M2/DAY (3600 MG), DAY 1-3 OF EVERY 21 DAY CYCLE
     Route: 042
     Dates: start: 20211006, end: 20211230
  2. ETOPOSIDE [Suspect]
     Active Substance: ETOPOSIDE
     Indication: Osteosarcoma
     Dosage: 100 MG/M2/DAY (100 MG), DAY 1-3 OF EVERY 21 DAY CYCLE
     Route: 042
     Dates: start: 20211006, end: 20211230

REACTIONS (6)
  - Death [Fatal]
  - Wound dehiscence [Recovered/Resolved]
  - Febrile neutropenia [Recovered/Resolved]
  - Pyrexia [Recovered/Resolved]
  - Febrile neutropenia [Recovered/Resolved]
  - Pyrexia [Recovered/Resolved]

NARRATIVE: CASE EVENT DATE: 20211009
